FAERS Safety Report 10652101 (Version 1)
Quarter: 2014Q4

REPORT INFORMATION
  Report Type: Spontaneous
  Country: US (occurrence: None)
  Receive Date: 20141211
  Receipt Date: 20141211
  Transmission Date: 20150529
  Serious: Yes (Death)
  Sender: FDA-Public Use
  Company Number: INS201411-000294

PATIENT
  Age: 86 Year
  Sex: Female

DRUGS (1)
  1. SUBSYS [Suspect]
     Active Substance: FENTANYL
     Indication: BREAKTHROUGH PAIN
     Dosage: 120 UNITS
     Route: 060
     Dates: start: 20140206

REACTIONS (1)
  - Death [None]

NARRATIVE: CASE EVENT DATE: 20140428
